FAERS Safety Report 4285610-7 (Version None)
Quarter: 2004Q1

REPORT INFORMATION
  Report Type: 
  Country: None (occurrence: None)
  Receive Date: 20040205
  Receipt Date: 20040125
  Transmission Date: 20041129
  Serious: Yes (Death)
  Sender: FDA-Public Use
  Company Number: SE-BRISTOL-MYERS SQUIBB COMPANY-12487880

PATIENT

DRUGS (2)
  1. TAXOL [Suspect]
     Route: 042
  2. CARBOPLATIN [Suspect]
     Route: 042

REACTIONS (1)
  - ALVEOLITIS [None]
